FAERS Safety Report 17630162 (Version 2)
Quarter: 2020Q2

REPORT INFORMATION
  Report Type: Spontaneous
  Country: IE (occurrence: GB)
  Receive Date: 20200406
  Receipt Date: 20200619
  Transmission Date: 20200713
  Serious: Yes (Other)
  Sender: FDA-Public Use
  Company Number: NVSC2020GB090928

PATIENT
  Sex: Female

DRUGS (11)
  1. TOPOTECAN [Suspect]
     Active Substance: TOPOTECAN HYDROCHLORIDE
     Indication: CONGENITAL RETINOBLASTOMA
     Dosage: 0.3 MG, CYCLIC
     Route: 065
  2. TOPOTECAN [Suspect]
     Active Substance: TOPOTECAN HYDROCHLORIDE
     Dosage: 1.5 MG, CYCLIC
     Route: 065
  3. CARBOPLATIN. [Suspect]
     Active Substance: CARBOPLATIN
     Dosage: UNK, SIX CYCLES
     Route: 065
  4. CARBOPLATIN. [Suspect]
     Active Substance: CARBOPLATIN
     Indication: CONGENITAL RETINOBLASTOMA
     Dosage: 30 MG, QD
     Route: 065
  5. MELPHALAN. [Suspect]
     Active Substance: MELPHALAN
     Indication: CONGENITAL RETINOBLASTOMA
     Dosage: 3 MG, CYCLIC
     Route: 065
  6. MELPHALAN. [Suspect]
     Active Substance: MELPHALAN
     Dosage: 7.5 MG, CYCLIC
     Route: 065
  7. ETOPOSIDE. [Suspect]
     Active Substance: ETOPOSIDE
     Indication: RETINOBLASTOMA
     Dosage: UNK SIX CYCLES
     Route: 065
  8. MELPHALAN. [Suspect]
     Active Substance: MELPHALAN
     Indication: CHEMOTHERAPY
     Dosage: 4 MG, CYCLIC
     Route: 065
  9. MELPHALAN. [Suspect]
     Active Substance: MELPHALAN
     Dosage: 5 MG, CYCLIC
     Route: 065
  10. VINCRISTINE [Suspect]
     Active Substance: VINCRISTINE
     Indication: RETINOBLASTOMA
     Dosage: UNK SIX CYCLES
     Route: 065
  11. TOPOTECAN [Suspect]
     Active Substance: TOPOTECAN HYDROCHLORIDE
     Dosage: 1 MG, CYCLIC
     Route: 065

REACTIONS (9)
  - Eyelid ptosis [Recovering/Resolving]
  - Product use issue [Unknown]
  - Rash [Unknown]
  - Swelling of eyelid [Unknown]
  - Swelling [Unknown]
  - Product use in unapproved indication [Unknown]
  - Congenital retinoblastoma [Unknown]
  - Ischaemia [Unknown]
  - Disease recurrence [Unknown]
